FAERS Safety Report 12630932 (Version 2)
Quarter: 2016Q3

REPORT INFORMATION
  Report Type: Spontaneous
  Country: US (occurrence: US)
  Receive Date: 20160808
  Receipt Date: 20160808
  Transmission Date: 20161109
  Serious: No
  Sender: FDA-Public Use
  Company Number: US-BEH-2015047736

PATIENT
  Age: 76 Year
  Sex: Female
  Weight: 59 kg

DRUGS (21)
  1. EPIPEN [Concomitant]
     Active Substance: EPINEPHRINE
  2. PROBIOTIC [Concomitant]
     Active Substance: PROBIOTICS NOS
  3. TRAZODONE [Concomitant]
     Active Substance: TRAZODONE HYDROCHLORIDE
  4. VITAMINS [Concomitant]
     Active Substance: VITAMINS
  5. PROBIOTIC [Concomitant]
     Active Substance: PROBIOTICS NOS
  6. MARINOL [Concomitant]
     Active Substance: DRONABINOL
  7. HIZENTRA [Suspect]
     Active Substance: HUMAN IMMUNOGLOBULIN G
     Indication: IMMUNODEFICIENCY COMMON VARIABLE
     Dosage: 10 GM 5 ML VIAL; 9 GM WEEKLY
     Route: 058
     Dates: start: 20141208, end: 20150122
  8. LIDOCAINE. [Concomitant]
     Active Substance: LIDOCAINE
  9. ACETAMINOPHEN. [Concomitant]
     Active Substance: ACETAMINOPHEN
  10. DIPHENHYDRAMINE. [Concomitant]
     Active Substance: DIPHENHYDRAMINE
  11. ASPIRIN. [Concomitant]
     Active Substance: ASPIRIN
  12. HIZENTRA [Suspect]
     Active Substance: HUMAN IMMUNOGLOBULIN G
     Indication: HYPOGAMMAGLOBULINAEMIA
     Dosage: 4 GM 20 ML VIAL; 9 GM WEEKLY
     Route: 058
  13. HIZENTRA [Suspect]
     Active Substance: HUMAN IMMUNOGLOBULIN G
     Route: 058
     Dates: start: 20141231, end: 20150127
  14. METOPROLOL. [Concomitant]
     Active Substance: METOPROLOL
  15. BERBERINE [Concomitant]
     Active Substance: BERBERINE
  16. ISOSORBIDE DINITRATE. [Concomitant]
     Active Substance: ISOSORBIDE DINITRATE
  17. VITAMIN D [Concomitant]
     Active Substance: CHOLECALCIFEROL
  18. CARISOPRODOL. [Concomitant]
     Active Substance: CARISOPRODOL
  19. DHEA [Concomitant]
     Active Substance: PRASTERONE
  20. AMLODIPINE [Concomitant]
     Active Substance: AMLODIPINE BESYLATE
  21. VITAMIN B [Concomitant]
     Active Substance: VITAMIN B

REACTIONS (14)
  - Headache [Unknown]
  - Chills [Unknown]
  - Influenza like illness [Unknown]
  - Infusion site swelling [Not Recovered/Not Resolved]
  - Nausea [Not Recovered/Not Resolved]
  - Headache [Not Recovered/Not Resolved]
  - Infusion site pain [Not Recovered/Not Resolved]
  - Urticaria [Not Recovered/Not Resolved]
  - Infusion site swelling [Not Recovered/Not Resolved]
  - Infusion site pain [Not Recovered/Not Resolved]
  - Pyrexia [Unknown]
  - Body temperature fluctuation [Unknown]
  - Pain [Not Recovered/Not Resolved]
  - Diarrhoea [Not Recovered/Not Resolved]

NARRATIVE: CASE EVENT DATE: 20141231
